FAERS Safety Report 6464846-0 (Version None)
Quarter: 2009Q4

REPORT INFORMATION
  Report Type: 
  Country: None (occurrence: None)
  Receive Date: 20091201
  Receipt Date: 20091127
  Transmission Date: 20100525
  Serious: Yes (Hospitalization)
  Sender: FDA-Public Use
  Company Number: A0816338A

PATIENT
  Sex: Female
  Weight: 65 kg

DRUGS (6)
  1. LAPATINIB [Suspect]
     Dosage: 1250MG PER DAY
     Route: 048
     Dates: start: 20091030
  2. DOCETAXEL [Suspect]
     Dosage: 125MG EVERY 3 WEEKS
     Route: 042
     Dates: start: 20091030
  3. EFFEXOR [Concomitant]
     Dates: start: 20050101
  4. NEXIUM [Concomitant]
     Dates: start: 20000101
  5. CLARITIN [Concomitant]
     Indication: MULTIPLE ALLERGIES
     Dates: start: 19890101
  6. ADVIL [Concomitant]
     Indication: OSTEOARTHRITIS
     Dates: start: 20000101

REACTIONS (1)
  - FEBRILE NEUTROPENIA [None]
